FAERS Safety Report 6135643-0 (Version None)
Quarter: 2009Q1

REPORT INFORMATION
  Report Type: 
  Country: None (occurrence: None)
  Receive Date: 20090327
  Receipt Date: 20080321
  Transmission Date: 20090719
  Serious: No
  Sender: FDA-Public Use
  Company Number: US-ASTRAZENECA-2008UW05705

PATIENT
  Sex: Male

DRUGS (1)
  1. LISINOPRIL [Suspect]
     Route: 048

REACTIONS (4)
  - ELECTROLYTE IMBALANCE [None]
  - HYPOTONIA [None]
  - MALAISE [None]
  - MUSCLE SPASMS [None]
